FAERS Safety Report 15495636 (Version 2)
Quarter: 2018Q4

REPORT INFORMATION
  Report Type: Spontaneous
  Country: BR (occurrence: BR)
  Receive Date: 20181013
  Receipt Date: 20181031
  Transmission Date: 20190205
  Serious: Yes (Other)
  Sender: FDA-Public Use
  Company Number: BR-009507513-1810BRA005247

PATIENT
  Age: 24 Year
  Sex: Female
  Weight: 65 kg

DRUGS (3)
  1. NUVARING [Suspect]
     Active Substance: ETHINYL ESTRADIOL\ETONOGESTREL
     Indication: CONTRACEPTION
     Dosage: 1 RING FOR 3 WEEKS AND 7 DAYS OF PAUSE
     Route: 067
     Dates: start: 2015
  2. NUVARING [Suspect]
     Active Substance: ETHINYL ESTRADIOL\ETONOGESTREL
     Dosage: 1 RING FOR 3 WEEKS AND 7 DAYS OF PAUSE
     Route: 067
     Dates: start: 20180912, end: 20180915
  3. NUVARING [Suspect]
     Active Substance: ETHINYL ESTRADIOL\ETONOGESTREL
     Dosage: 1 RING FOR 3 WEEKS AND 7 DAYS OF PAUSE
     Route: 067
     Dates: start: 20180917

REACTIONS (7)
  - Inappropriate schedule of product administration [Unknown]
  - Device expulsion [Unknown]
  - Vulvovaginal pain [Recovered/Resolved]
  - Device breakage [Recovered/Resolved]
  - Vulvovaginal discomfort [Recovered/Resolved]
  - Therapeutic response unexpected [Unknown]
  - Vulvovaginal injury [Unknown]

NARRATIVE: CASE EVENT DATE: 201809
